FAERS Safety Report 4673647-5 (Version None)
Quarter: 2005Q2

REPORT INFORMATION
  Report Type: 
  Country: None (occurrence: None)
  Receive Date: 20050523
  Receipt Date: 20050514
  Transmission Date: 20051028
  Serious: Yes (Other)
  Sender: FDA-Public Use
  Company Number: 2005-05-0863

PATIENT
  Age: 19 Year
  Sex: Female
  Weight: 113.3993 kg

DRUGS (3)
  1. ALBUTEROL [Suspect]
     Indication: INFECTION
     Dosage: ORAL AER INH
     Route: 048
  2. TRAZODONE FOR INSOMNIA [Concomitant]
  3. LEXAPRO [Concomitant]

REACTIONS (8)
  - AMNESIA [None]
  - CYANOSIS [None]
  - DEPRESSED LEVEL OF CONSCIOUSNESS [None]
  - DEVICE FAILURE [None]
  - FOREIGN BODY TRAUMA [None]
  - INFECTION [None]
  - PAIN [None]
  - SENSATION OF FOREIGN BODY [None]
